FAERS Safety Report 11407263 (Version 5)
Quarter: 2016Q1

REPORT INFORMATION
  Report Type: Report from Study
  Country: EC (occurrence: EC)
  Receive Date: 20150821
  Receipt Date: 20160330
  Transmission Date: 20160525
  Serious: Yes (Hospitalization, Other)
  Sender: FDA-Public Use
  Company Number: PHHY2015EC101390

PATIENT
  Age: 27 Year
  Sex: Female

DRUGS (5)
  1. SANDOSTATIN LAR DEPOT [Suspect]
     Active Substance: OCTREOTIDE ACETATE
     Dosage: 20 MG, QMO
     Route: 030
     Dates: start: 20160323
  2. SANDOSTATIN LAR DEPOT [Suspect]
     Active Substance: OCTREOTIDE ACETATE
     Dosage: 20 MG, QMO
     Route: 030
     Dates: start: 20150522
  3. SANDOSTATIN LAR DEPOT [Suspect]
     Active Substance: OCTREOTIDE ACETATE
     Indication: ACROMEGALY
     Dosage: 10 MG, QMO
     Route: 030
     Dates: start: 20141001, end: 20150521
  4. SANDOSTATIN LAR DEPOT [Suspect]
     Active Substance: OCTREOTIDE ACETATE
     Dosage: 20 MG, QMO
     Route: 030
     Dates: start: 20160303
  5. CABERGOLINA [Concomitant]
     Active Substance: CABERGOLINE
     Indication: PRODUCT USED FOR UNKNOWN INDICATION
     Dosage: 1.5 DF, BIW (1.5 DF ON TUESDAYS AND 1.5 DF ON SARTUDAY)
     Route: 065

REACTIONS (7)
  - Bone deformity [Unknown]
  - Arthralgia [Unknown]
  - Complication associated with device [Not Recovered/Not Resolved]
  - Movement disorder [Unknown]
  - Abasia [Unknown]
  - Pain [Not Recovered/Not Resolved]
  - Inappropriate schedule of drug administration [Unknown]

NARRATIVE: CASE EVENT DATE: 20150805
